FAERS Safety Report 14333955 (Version 1)
Quarter: 2017Q4

REPORT INFORMATION
  Report Type: Report from Study
  Country: PH (occurrence: PH)
  Receive Date: 20171228
  Receipt Date: 20171228
  Transmission Date: 20180321
  Serious: Yes (Hospitalization)
  Sender: FDA-Public Use
  Company Number: PH-ASTELLAS-2010002534

PATIENT
  Age: 60 Year
  Sex: Male
  Weight: 47 kg

DRUGS (10)
  1. GEMCITABINE [Suspect]
     Active Substance: GEMCITABINE\GEMCITABINE HYDROCHLORIDE
     Indication: NON-SMALL CELL LUNG CANCER
     Dosage: 1900 MG, OTHER (FREQUENCY: ONCE)
     Route: 042
     Dates: start: 20100513
  2. CARBOPLATIN. [Suspect]
     Active Substance: CARBOPLATIN
     Dosage: 380 MG, OTHER (FREQUENCY: ONCE, LAST DOSE PRIOR TO SAE: 09 OCTOBER 2010, TEMPORARILY INTERRUPTED)
     Route: 042
     Dates: start: 20100520
  3. ASCORBIC ACID. [Concomitant]
     Active Substance: ASCORBIC ACID
     Indication: PRODUCT USED FOR UNKNOWN INDICATION
     Dosage: UNK, UNKNOWN FREQ.
     Route: 065
  4. GEMCITABINE [Suspect]
     Active Substance: GEMCITABINE\GEMCITABINE HYDROCHLORIDE
     Dosage: 1900 MG, OTHER (FREQUENCY: ONCE, LAST DOSE PRIOR TO SAE: 09 OCTOBER 2010, TEMPORARILY INTERRUPTED.)
     Route: 042
     Dates: start: 20100520
  5. PRIALTA [Concomitant]
     Indication: PRODUCT USED FOR UNKNOWN INDICATION
     Dosage: UNK, UNKNOWN FREQ.
     Route: 065
  6. CARBOPLATIN. [Suspect]
     Active Substance: CARBOPLATIN
     Indication: NON-SMALL CELL LUNG CANCER
     Dosage: 380 MG, OTHER (FREQUENCY: ONCE)
     Route: 042
     Dates: start: 20100513
  7. METOCLOPRAMIDE. [Concomitant]
     Active Substance: METOCLOPRAMIDE
     Indication: PRODUCT USED FOR UNKNOWN INDICATION
     Dosage: UNK, UNKNOWN FREQ.
     Route: 065
     Dates: start: 20100812, end: 20100814
  8. ERLOTINIB [Suspect]
     Active Substance: ERLOTINIB
     Indication: NON-SMALL CELL LUNG CANCER
     Route: 048
     Dates: start: 20100527
  9. ERLOTINIB [Suspect]
     Active Substance: ERLOTINIB
     Route: 048
  10. FERROUS SULFATE. [Concomitant]
     Active Substance: FERROUS SULFATE
     Indication: PRODUCT USED FOR UNKNOWN INDICATION
     Dosage: UNK, UNKNOWN FREQ.
     Route: 065

REACTIONS (1)
  - Anaemia [Recovered/Resolved]

NARRATIVE: CASE EVENT DATE: 20100617
